FAERS Safety Report 12255768 (Version 1)
Quarter: 2016Q2

REPORT INFORMATION
  Report Type: Spontaneous
  Country: US (occurrence: None)
  Receive Date: 20160411
  Receipt Date: 20160411
  Transmission Date: 20160815
  Serious: No
  Sender: FDA-Public Use
  Company Number: None

PATIENT
  Age: 42 Year
  Sex: Female
  Weight: 156.49 kg

DRUGS (10)
  1. PHEN [Concomitant]
  2. PERCOGESIC [Concomitant]
  3. PROZAC [Concomitant]
     Active Substance: FLUOXETINE HYDROCHLORIDE
  4. MULTI VITAMIN [Concomitant]
     Active Substance: VITAMINS
  5. DICYCLOMINE [Suspect]
     Active Substance: DICYCLOMINE HYDROCHLORIDE
     Indication: GASTRIC DISORDER
     Dosage: 90 CAPSULES THREE TIMES A DAY
     Route: 048
     Dates: start: 20160204
  6. NORCO [Concomitant]
     Active Substance: ACETAMINOPHEN\HYDROCODONE BITARTRATE
  7. VITAMIN B12 [Concomitant]
     Active Substance: CYANOCOBALAMIN
  8. PRILOSEC [Concomitant]
     Active Substance: OMEPRAZOLE MAGNESIUM
  9. TRAZDONE [Concomitant]
     Active Substance: TRAZODONE HYDROCHLORIDE
  10. VITAMIN D [Concomitant]
     Active Substance: CHOLECALCIFEROL

REACTIONS (4)
  - Headache [None]
  - Rash [None]
  - Feeling abnormal [None]
  - Confusional state [None]

NARRATIVE: CASE EVENT DATE: 20160224
